FAERS Safety Report 24047097 (Version 3)
Quarter: 2025Q1

REPORT INFORMATION
  Report Type: Spontaneous
  Country: US (occurrence: US)
  Receive Date: 20240703
  Receipt Date: 20250311
  Transmission Date: 20250408
  Serious: Yes (Other)
  Sender: MERCK SHARP & DOHME LLC
  Company Number: US-PFIZER INC-202400204399

PATIENT
  Sex: Female

DRUGS (16)
  1. PEMBROLIZUMAB [Suspect]
     Active Substance: PEMBROLIZUMAB
     Indication: Renal cancer
  2. INLYTA [Suspect]
     Active Substance: AXITINIB
     Indication: Renal cancer
     Dates: start: 202310, end: 202501
  3. INLYTA [Suspect]
     Active Substance: AXITINIB
     Indication: Renal cancer
     Dates: start: 202501
  4. SYMBICORT [Concomitant]
     Active Substance: BUDESONIDE\FORMOTEROL FUMARATE DIHYDRATE
  5. ONDANSETRON [Concomitant]
     Active Substance: ONDANSETRON
  6. ALBUTEROL [Concomitant]
     Active Substance: ALBUTEROL
  7. VENLAFAXINE [Concomitant]
     Active Substance: VENLAFAXINE HYDROCHLORIDE
  8. ALPRAZOLAM [Concomitant]
     Active Substance: ALPRAZOLAM
  9. CETIRIZINE [Concomitant]
     Active Substance: CETIRIZINE HYDROCHLORIDE
  10. AIRSUPRA [Concomitant]
     Active Substance: ALBUTEROL SULFATE\BUDESONIDE
  11. TYLENOL [Concomitant]
     Active Substance: ACETAMINOPHEN
  12. IBUPROFEN [Concomitant]
     Active Substance: IBUPROFEN
  13. NEBIVOLOL [Concomitant]
     Active Substance: NEBIVOLOL
  14. AMLODIPINE [Concomitant]
     Active Substance: AMLODIPINE BESYLATE
  15. FAMOTIDINE [Concomitant]
     Active Substance: FAMOTIDINE
  16. LEVOTHYROXINE [Concomitant]
     Active Substance: LEVOTHYROXINE

REACTIONS (4)
  - Headache [Not Recovered/Not Resolved]
  - Skin exfoliation [Not Recovered/Not Resolved]
  - Skin erosion [Not Recovered/Not Resolved]
  - Fatigue [Unknown]

NARRATIVE: CASE EVENT DATE: 20250101
